FAERS Safety Report 8093234-9 (Version None)
Quarter: 2012Q1

REPORT INFORMATION
  Report Type: 
  Country: None (occurrence: None)
  Receive Date: 20120128
  Receipt Date: 20111026
  Transmission Date: 20120608
  Serious: No
  Sender: FDA-Public Use
  Company Number: US-ABBOTT-11P-163-0727936-00

PATIENT
  Age: 41 Year
  Sex: Female

DRUGS (5)
  1. METHOTREXATE [Concomitant]
     Indication: PSORIASIS
  2. NAPROXEN [Concomitant]
     Indication: PRODUCT USED FOR UNKNOWN INDICATION
     Dates: end: 20110301
  3. LATUDA [Concomitant]
     Indication: BIPOLAR DISORDER
  4. HUMIRA [Suspect]
     Indication: PSORIASIS
     Dates: start: 20100801
  5. DIOVAN [Concomitant]
     Indication: PRODUCT USED FOR UNKNOWN INDICATION
     Dates: start: 20110501

REACTIONS (7)
  - ROAD TRAFFIC ACCIDENT [None]
  - HEADACHE [None]
  - HYPERTENSION [None]
  - NECK PAIN [None]
  - GASTRIC DISORDER [None]
  - ANXIETY [None]
  - PSORIASIS [None]
